FAERS Safety Report 18162137 (Version 1)
Quarter: 2020Q3

REPORT INFORMATION
  Report Type: Spontaneous
  Country: US (occurrence: US)
  Receive Date: 20200818
  Receipt Date: 20200818
  Transmission Date: 20201103
  Serious: Yes (Other)
  Sender: FDA-Public Use
  Company Number: US-009507513-2008USA008960

PATIENT
  Age: 75 Year
  Sex: Female

DRUGS (5)
  1. PROVENTIL [Suspect]
     Active Substance: ALBUTEROL
     Indication: ASTHMA
     Dosage: UNK
  2. PROVENTIL [Suspect]
     Active Substance: ALBUTEROL
     Indication: ASTHMA
     Dosage: UNK
  3. PROVENTIL [Suspect]
     Active Substance: ALBUTEROL
     Indication: ASTHMA
  4. PROVENTIL [Suspect]
     Active Substance: ALBUTEROL
     Indication: ASTHMA
     Dosage: UNK
     Dates: start: 202008
  5. PROVENTIL [Suspect]
     Active Substance: ALBUTEROL
     Dosage: UNK

REACTIONS (4)
  - Expired product administered [Unknown]
  - Poor quality device used [Unknown]
  - Pulmonary embolism [Unknown]
  - Device malfunction [Unknown]

NARRATIVE: CASE EVENT DATE: 202008
